FAERS Safety Report 25664836 (Version 3)
Quarter: 2025Q3

REPORT INFORMATION
  Report Type: Spontaneous
  Country: US (occurrence: US)
  Receive Date: 20250811
  Receipt Date: 20250923
  Transmission Date: 20251020
  Serious: Yes (Death, Life-Threatening, Hospitalization, Other)
  Sender: AUROBINDO
  Company Number: US-SANDOZ-SDZ2025US043399

PATIENT
  Age: 29 Year
  Sex: Male

DRUGS (6)
  1. CARVEDILOL [Interacting]
     Active Substance: CARVEDILOL
     Indication: Product used for unknown indication
     Dosage: 6.25 MILLIGRAM, TWO TIMES A DAY
     Route: 065
  2. COLCHICINE [Interacting]
     Active Substance: COLCHICINE
     Indication: Product used for unknown indication
     Route: 065
  3. COLCHICINE [Interacting]
     Active Substance: COLCHICINE
     Dosage: 15 MILLIGRAM, 1 X TOTAL
     Route: 065
  4. COLCHICINE [Interacting]
     Active Substance: COLCHICINE
     Route: 065
  5. COCAINE [Suspect]
     Active Substance: COCAINE
     Indication: Product used for unknown indication
     Route: 065
  6. METHAMPHETAMINE [Suspect]
     Active Substance: METHAMPHETAMINE
     Indication: Product used for unknown indication
     Route: 065

REACTIONS (18)
  - Cardiogenic shock [Fatal]
  - Pulmonary oedema [Unknown]
  - Multiple organ dysfunction syndrome [Fatal]
  - Bradycardia [Fatal]
  - Cardiac failure [Fatal]
  - Somnolence [Unknown]
  - Leukocytosis [Recovering/Resolving]
  - Overdose [Unknown]
  - Vomiting [Unknown]
  - Diarrhoea [Unknown]
  - Nausea [Unknown]
  - Blood creatinine increased [Unknown]
  - Aspartate aminotransferase increased [Unknown]
  - Alanine aminotransferase increased [Unknown]
  - Drug interaction [Unknown]
  - Dizziness [Unknown]
  - Toxicity to various agents [Unknown]
  - Drug abuse [Unknown]
